FAERS Safety Report 19672723 (Version 1)
Quarter: 2021Q3

REPORT INFORMATION
  Report Type: Spontaneous
  Country: GB (occurrence: GB)
  Receive Date: 20210809
  Receipt Date: 20210809
  Transmission Date: 20211014
  Serious: Yes (Other)
  Sender: FDA-Public Use
  Company Number: GB-TEVA-2021-GB-1939017

PATIENT
  Age: 72 Year
  Sex: Male
  Weight: 70 kg

DRUGS (2)
  1. DECAPEPTYL SR [Concomitant]
     Active Substance: TRIPTORELIN
     Indication: PROSTATE CANCER
  2. TAMSULOSIN [Suspect]
     Active Substance: TAMSULOSIN
     Indication: PROSTATOMEGALY
     Dosage: 400 MICROGRAM DAILY;
     Route: 048
     Dates: start: 20210101, end: 20210713

REACTIONS (3)
  - Dizziness exertional [Recovered/Resolved]
  - Heart rate irregular [Recovered/Resolved]
  - Blood pressure decreased [Recovered/Resolved]

NARRATIVE: CASE EVENT DATE: 20210621
